FAERS Safety Report 18687958 (Version 3)
Quarter: 2021Q1

REPORT INFORMATION
  Report Type: Spontaneous
  Country: FR (occurrence: US)
  Receive Date: 20201231
  Receipt Date: 20210216
  Transmission Date: 20210419
  Serious: Yes (Other)
  Sender: FDA-Public Use
  Company Number: FR-AMGEN-USASP2020208829

PATIENT
  Age: 35 Year
  Sex: Female

DRUGS (8)
  1. NEUPOGEN [Suspect]
     Active Substance: FILGRASTIM
     Indication: PRODUCT USED FOR UNKNOWN INDICATION
     Dosage: 0.2 MILLILITER, QD
     Route: 065
     Dates: start: 2019
  2. LOVENOX [Concomitant]
     Active Substance: ENOXAPARIN SODIUM
     Dosage: 0.4 MILLILITER
     Dates: start: 2019
  3. PLAQUENIL [Concomitant]
     Active Substance: HYDROXYCHLOROQUINE SULFATE
     Dosage: 400 MILLIGRAM
     Dates: start: 2019, end: 2020
  4. UTROGESTAN [Concomitant]
     Active Substance: PROGESTERONE
     Dosage: 800 MILLIGRAM
     Route: 067
     Dates: start: 202002
  5. CORTANCYL [Concomitant]
     Active Substance: PREDNISONE
     Dosage: 7.5 MILLIGRAM (INCREASED DOSE TO 10 MG/DAY)
     Dates: start: 2019
  6. ASPEGIC [ACETYLSALICYLIC ACID] [Concomitant]
     Active Substance: ASPIRIN
     Dosage: 100 MILLIGRAM
     Dates: start: 2019
  7. PROVAMES [Concomitant]
     Active Substance: ESTRADIOL
     Dosage: 6 MILLIGRAM, QD
     Route: 048
     Dates: start: 202002
  8. VIVELLE?DOT [Concomitant]
     Active Substance: ESTRADIOL
     Dosage: 100 MILLIGRAM EVERY TWO DAYS (PATCHES )
     Route: 065
     Dates: start: 2020

REACTIONS (4)
  - Drug-induced liver injury [Unknown]
  - Cholelithiasis [Unknown]
  - Exposure during pregnancy [Unknown]
  - COVID-19 [Recovered/Resolved]

NARRATIVE: CASE EVENT DATE: 2020
